FAERS Safety Report 17224189 (Version 1)
Quarter: 2019Q4

REPORT INFORMATION
  Report Type: Spontaneous
  Country: US (occurrence: US)
  Receive Date: 20191209
  Receipt Date: 20191209
  Transmission Date: 20200122
  Serious: Yes (Life-Threatening)
  Sender: FDA-Public Use
  Company Number: None

PATIENT
  Age: 56 Year
  Sex: Female

DRUGS (9)
  1. DICLOFENAC GEL [Concomitant]
     Active Substance: DICLOFENAC
  2. LEVOTHYROXIN [Concomitant]
     Active Substance: LEVOTHYROXINE
  3. OCALIVA [Suspect]
     Active Substance: OBETICHOLIC ACID
     Indication: DERMATITIS ATOPIC
     Route: 048
     Dates: start: 20170418
  4. FAMOTIDINE. [Concomitant]
     Active Substance: FAMOTIDINE
  5. FLUOCINONIDE. [Concomitant]
     Active Substance: FLUOCINONIDE
  6. ATORVASTATIN [Concomitant]
     Active Substance: ATORVASTATIN
  7. LEVOTHYROXIN [Concomitant]
     Active Substance: LEVOTHYROXINE
  8. CLOPIDOGREL [Concomitant]
     Active Substance: CLOPIDOGREL BISULFATE
  9. LIOTHYRONINE [Concomitant]
     Active Substance: LIOTHYRONINE

REACTIONS (2)
  - Cerebrovascular accident [None]
  - Therapy cessation [None]

NARRATIVE: CASE EVENT DATE: 20191206
